FAERS Safety Report 4282516-4 (Version None)
Quarter: 2004Q1

REPORT INFORMATION
  Report Type: 
  Country: None (occurrence: None)
  Receive Date: 20040129
  Receipt Date: 20040115
  Transmission Date: 20041129
  Serious: Yes (Death)
  Sender: FDA-Public Use
  Company Number: US-JNJFOC-20031005618

PATIENT
  Age: 42 Year
  Sex: Female
  Weight: 95.2554 kg

DRUGS (6)
  1. DURAGESIC [Suspect]
     Indication: PAIN
     Dosage: SEE IMAGE
     Route: 062
     Dates: start: 20011001, end: 20011003
  2. DURAGESIC [Suspect]
     Indication: PAIN
     Dosage: SEE IMAGE
     Route: 062
     Dates: start: 20011003, end: 20011011
  3. XANAFLEX (TIZANIDINE HYDROCHLORIDE) [Concomitant]
  4. BACLOFEN [Concomitant]
  5. NEURONTIN [Concomitant]
  6. LORTAB [Concomitant]

REACTIONS (5)
  - ACCIDENT [None]
  - BRONCHOPNEUMONIA [None]
  - COMA [None]
  - DRUG TOXICITY [None]
  - PULMONARY CONGESTION [None]
